FAERS Safety Report 5324642-4 (Version None)
Quarter: 2007Q2

REPORT INFORMATION
  Report Type: 
  Country: None (occurrence: None)
  Receive Date: 20070508
  Receipt Date: 20070424
  Transmission Date: 20071010
  Serious: Yes (Death, Other)
  Sender: FDA-Public Use
  Company Number: 152563ISR

PATIENT
  Age: 74 Year
  Sex: Female

DRUGS (2)
  1. TRIMETHOPRIM [Suspect]
     Indication: URINARY TRACT INFECTION
     Dosage: 150 MG, ORAL
     Route: 048
     Dates: start: 20050824, end: 20050902
  2. METHOTREXATE [Suspect]
     Indication: RHEUMATOID ARTHRITIS
     Dosage: 1 IN 1 WK

REACTIONS (9)
  - CLOSTRIDIAL INFECTION [None]
  - DIARRHOEA [None]
  - DRUG INTERACTION [None]
  - KLEBSIELLA SEPSIS [None]
  - MALAISE [None]
  - NEUTROPENIC SEPSIS [None]
  - PATHOGEN RESISTANCE [None]
  - SEPTIC SHOCK [None]
  - STAPHYLOCOCCAL INFECTION [None]
